FAERS Safety Report 4358744-6 (Version None)
Quarter: 2004Q2

REPORT INFORMATION
  Report Type: 
  Country: None (occurrence: None)
  Receive Date: 20040511
  Receipt Date: 20040428
  Transmission Date: 20050107
  Serious: Yes (Death, Life-Threatening, Hospitalization)
  Sender: FDA-Public Use
  Company Number: 2004028463

PATIENT
  Age: 18 Year
  Sex: Female

DRUGS (5)
  1. GEODON [Suspect]
     Indication: PSYCHOTIC DISORDER
     Dosage: REPEATED TWO HOURS LATER, INTRAMUSCULAR
     Route: 030
  2. LORAZEPAM [Suspect]
     Indication: PSYCHOTIC DISORDER
     Dosage: REPEATED TWO HOURS LATTER, INTRAMUSCULAR
     Route: 030
  3. COCAINE (COCAINE) [Suspect]
     Indication: ILL-DEFINED DISORDER
  4. DIAMORPHINE (DIAMORPHINE) [Suspect]
     Indication: ILL-DEFINED DISORDER
  5. ALL OTHER THERAPEUTIC PRODUCTS [Concomitant]

REACTIONS (10)
  - ABNORMAL BEHAVIOUR [None]
  - AGITATION [None]
  - BODY TEMPERATURE INCREASED [None]
  - CARDIAC ARREST [None]
  - CARDIO-RESPIRATORY ARREST [None]
  - CATATONIA [None]
  - HYPERHIDROSIS [None]
  - SEDATION [None]
  - SUDDEN DEATH [None]
  - TREMOR [None]
